FAERS Safety Report 9999068 (Version 1)
Quarter: 2014Q1

REPORT INFORMATION
  Report Type: Spontaneous
  Country: DE (occurrence: DE)
  Receive Date: 20140312
  Receipt Date: 20140312
  Transmission Date: 20141002
  Serious: Yes (Other)
  Sender: FDA-Public Use
  Company Number: 2014SP001310

PATIENT
  Age: 38 Year
  Sex: Male

DRUGS (2)
  1. METHOTREXATE [Suspect]
     Indication: TOLOSA-HUNT SYNDROME
     Route: 065
  2. PREDNISOLONE [Suspect]
     Indication: TOLOSA-HUNT SYNDROME
     Route: 065

REACTIONS (2)
  - Off label use [Unknown]
  - Drug ineffective for unapproved indication [Unknown]
